FAERS Safety Report 20127091 (Version 1)
Quarter: 2021Q4

REPORT INFORMATION
  Report Type: Spontaneous
  Country: US (occurrence: US)
  Receive Date: 20211129
  Receipt Date: 20211129
  Transmission Date: 20220303
  Serious: Yes (Other)
  Sender: FDA-Public Use
  Company Number: US-GLAXOSMITHKLINE-USCH2021GSK085159

PATIENT
  Age: 58 Year
  Sex: Female
  Weight: 87.5 kg

DRUGS (16)
  1. SCOPOLAMINE [Suspect]
     Active Substance: SCOPOLAMINE
     Indication: Prophylaxis of nausea and vomiting
     Dosage: UNK
     Route: 062
  2. ACETAMINOPHEN [Concomitant]
     Active Substance: ACETAMINOPHEN
     Indication: Prophylaxis of nausea and vomiting
     Dosage: 975 MG
     Route: 048
  3. GABAPENTIN [Concomitant]
     Active Substance: GABAPENTIN
     Indication: Prophylaxis of nausea and vomiting
     Dosage: 300 MG
     Route: 048
  4. VALPROIC ACID [Concomitant]
     Active Substance: VALPROIC ACID
     Indication: Migraine
     Dosage: 500 MG
     Route: 042
  5. FENTANYL [Concomitant]
     Active Substance: FENTANYL
     Indication: Nerve block
     Dosage: 100 MCG
     Route: 042
  6. MIDAZOLAM [Concomitant]
     Active Substance: MIDAZOLAM
     Indication: Nerve block
     Dosage: 2 MG
  7. ROPIVACAINE [Concomitant]
     Active Substance: ROPIVACAINE
     Indication: Local anaesthesia
     Dosage: 10 ML OF 0.5%
  8. LIDOCAINE [Concomitant]
     Active Substance: LIDOCAINE
     Indication: Local anaesthesia
     Dosage: 2 %
  9. PROPOFOL [Concomitant]
     Active Substance: PROPOFOL
     Indication: General anaesthesia
     Dosage: 200 MG
     Route: 042
  10. SUCCINYLCHOLINE [Concomitant]
     Active Substance: SUCCINYLCHOLINE
     Indication: General anaesthesia
     Dosage: 140 MG
  11. SEVOFLURANE [Concomitant]
     Active Substance: SEVOFLURANE
     Indication: General anaesthesia
     Dosage: UNK, MAINTENANCE
     Route: 055
  12. ROCURONIUM [Concomitant]
     Active Substance: ROCURONIUM BROMIDE
     Indication: General anaesthesia
     Dosage: 50 MG, MAINTENANCE
     Route: 042
  13. ONDANSETRON [Concomitant]
     Active Substance: ONDANSETRON
     Indication: Vomiting
     Dosage: 4 MG
     Route: 042
  14. DEXAMETHASONE [Concomitant]
     Active Substance: DEXAMETHASONE
     Indication: Vomiting
     Dosage: 4 MG
     Route: 042
  15. CEFAZOLIN [Concomitant]
     Active Substance: CEFAZOLIN
     Indication: Prophylaxis
     Dosage: 2 G
     Route: 042
  16. VANCOMYCIN [Concomitant]
     Active Substance: VANCOMYCIN
     Indication: Prophylaxis
     Dosage: 1000 MG ONTO THE SURGICAL SITE
     Route: 061

REACTIONS (6)
  - Eyelid function disorder [Recovered/Resolved]
  - Eyelid ptosis [Recovered/Resolved]
  - Gaze palsy [Unknown]
  - Somnolence [Recovered/Resolved]
  - Headache [Recovered/Resolved]
  - Paraesthesia [Recovered/Resolved]
